FAERS Safety Report 4990369-1 (Version None)
Quarter: 2006Q2

REPORT INFORMATION
  Report Type: 
  Country: None (occurrence: None)
  Receive Date: 20060503
  Receipt Date: 20060424
  Transmission Date: 20061013
  Serious: Yes (Hospitalization)
  Sender: FDA-Public Use
  Company Number: US-JNJFOC-20060406240

PATIENT
  Sex: Female
  Weight: 74.84 kg

DRUGS (5)
  1. DURAGESIC-100 [Suspect]
     Route: 062
  2. DURAGESIC-100 [Suspect]
     Route: 062
  3. DURAGESIC-100 [Suspect]
     Route: 062
  4. PROZAC [Concomitant]
     Indication: DEPRESSION
     Route: 048
  5. ZANAFLEX [Concomitant]
     Route: 048

REACTIONS (4)
  - BRAIN NEOPLASM BENIGN [None]
  - DEPRESSION [None]
  - INSOMNIA [None]
  - PELVIC PAIN [None]
